FAERS Safety Report 6364742-3 (Version None)
Quarter: 2009Q3

REPORT INFORMATION
  Report Type: 
  Country: None (occurrence: None)
  Receive Date: 20090919
  Receipt Date: 20090824
  Transmission Date: 20100115
  Serious: No
  Sender: FDA-Public Use
  Company Number: US-ABBOTT-09P-163-0588411-00

PATIENT
  Sex: Female
  Weight: 100.79 kg

DRUGS (28)
  1. HUMIRA [Suspect]
     Indication: RHEUMATOID ARTHRITIS
     Route: 058
     Dates: start: 20090717
  2. AZMACORT [Concomitant]
     Indication: ASTHMA
     Route: 055
  3. AZMACORT [Concomitant]
     Indication: BRONCHITIS
  4. ALBUTEROL [Concomitant]
     Indication: ASTHMA
     Route: 055
  5. ALLOPURINOL [Concomitant]
     Indication: GOUT
     Route: 048
  6. AMLODIPINE [Concomitant]
     Indication: HYPERTENSION
     Route: 048
  7. BENICAR [Concomitant]
     Indication: HYPERTENSION
     Route: 048
  8. BROMOCRIPTINE [Concomitant]
     Indication: BLOOD PROLACTIN INCREASED
     Route: 048
  9. COREG [Concomitant]
     Indication: HYPERTENSION
     Route: 048
  10. DILAVITE [Concomitant]
     Indication: VITAMIN SUPPLEMENTATION
     Route: 048
  11. EPOGEN [Concomitant]
     Indication: ANAEMIA
     Dosage: AS NEEDED WITH DIALYSIS
  12. FLUOXETINE [Concomitant]
     Indication: DEPRESSION
     Route: 048
  13. FUROSEMIDE [Concomitant]
     Indication: BLOOD PRESSURE
     Route: 048
  14. HUMALOG [Concomitant]
     Indication: DIABETES MELLITUS
     Dosage: PER SLIDING SCALE
     Route: 058
  15. JANUVIA [Concomitant]
     Indication: DIABETES MELLITUS
     Route: 048
  16. LEVAMIR [Concomitant]
     Indication: DIABETES MELLITUS
     Route: 058
  17. LEVOTHYROXINE SODIUM [Concomitant]
     Indication: THYROIDECTOMY
     Route: 048
  18. LIPITOR [Concomitant]
     Indication: BLOOD CHOLESTEROL
     Route: 048
  19. LIDOCAINE/PRILOCAINE [Concomitant]
     Indication: DIALYSIS
     Route: 061
  20. PREVACID [Concomitant]
     Indication: PSYCHOMOTOR HYPERACTIVITY
     Route: 048
  21. WARFARIN SODIUM [Concomitant]
     Indication: HEART VALVE REPLACEMENT
     Dosage: PER PT /INR
  22. VITAMIN D [Concomitant]
     Indication: VITAMIN SUPPLEMENTATION
     Route: 048
  23. TUMS [Concomitant]
     Indication: VITAMIN SUPPLEMENTATION
     Route: 048
  24. TUMS [Concomitant]
     Indication: BLOOD CALCIUM DECREASED
  25. NASONEX [Concomitant]
     Indication: SEASONAL ALLERGY
     Dosage: 2 SPRAYS EACH NOSTRIL AS NEEDED
     Route: 045
  26. OXYCODONE [Concomitant]
     Indication: RESTLESS LEGS SYNDROME
     Dosage: TAKES WITH PHENERGAN 2 HOURS BEFORE BEDTIME
     Route: 048
  27. PHNERGAN [Concomitant]
     Indication: RESTLESS LEGS SYNDROME
     Dosage: TAKES WITH OXYCODONE 2 HOURS BEFORE BEDTIME
     Route: 048
  28. IRON SUPPLEMENT [Concomitant]
     Indication: ANAEMIA
     Dosage: EVERY SAT WITH DIALYSIS

REACTIONS (1)
  - INTERNATIONAL NORMALISED RATIO DECREASED [None]
